FAERS Safety Report 9785383 (Version 1)
Quarter: 2013Q4

REPORT INFORMATION
  Report Type: Spontaneous
  Country: US (occurrence: None)
  Receive Date: 20131226
  Receipt Date: 20131226
  Transmission Date: 20140711
  Serious: No
  Sender: FDA-Public Use
  Company Number: None

PATIENT
  Age: 75 Year
  Sex: Male
  Weight: 127.01 kg

DRUGS (6)
  1. SIMVASTATIN [Suspect]
     Indication: BLOOD CHOLESTEROL
     Route: 048
     Dates: start: 2011, end: 20131125
  2. CPAP [Concomitant]
  3. FLONASE SPRAY [Concomitant]
  4. CLARITIN [Concomitant]
  5. FEXOFENADINE [Concomitant]
  6. OMEPRAZOLE [Concomitant]

REACTIONS (1)
  - Speech disorder [None]
